FAERS Safety Report 6695269-7 (Version None)
Quarter: 2010Q2

REPORT INFORMATION
  Report Type: 
  Country: None (occurrence: None)
  Receive Date: 20100423
  Receipt Date: 20100412
  Transmission Date: 20101027
  Serious: Yes (Death)
  Sender: FDA-Public Use
  Company Number: MX-ELI_LILLY_AND_COMPANY-MX201004003041

PATIENT
  Age: 82 Year
  Sex: Male
  Weight: 72 kg

DRUGS (8)
  1. FORTEO [Suspect]
     Indication: OSTEOPOROSIS
     Dosage: 20 UG, DAILY (1/D)
     Route: 058
     Dates: start: 20090701
  2. DIABION [Concomitant]
     Indication: DIABETES MELLITUS
  3. CRESTOR [Concomitant]
     Dosage: 20 MG, 5/W
     Route: 048
  4. RASTINON [Concomitant]
     Dosage: 500 MG, DAILY (1/D)
     Route: 048
  5. JANUVIA [Concomitant]
     Dosage: 50 MG, DAILY (1/D)
     Route: 048
  6. ASPIRIN [Concomitant]
     Dosage: UNK, EACH MORNING
     Route: 048
  7. HYGROTON [Concomitant]
     Dosage: UNK, OTHER
     Route: 048
  8. ANAPSIQUE [Concomitant]
     Indication: SLEEP DISORDER
     Dosage: UNK, UNKNOWN
     Route: 048

REACTIONS (1)
  - MYOCARDIAL INFARCTION [None]
